FAERS Safety Report 4920184-6 (Version None)
Quarter: 2006Q1

REPORT INFORMATION
  Report Type: 
  Country: None (occurrence: None)
  Receive Date: 20060223
  Receipt Date: 20060213
  Transmission Date: 20060701
  Serious: Yes (Other)
  Sender: FDA-Public Use
  Company Number: 2006AC00279

PATIENT
  Age: 81 Year
  Sex: Female

DRUGS (4)
  1. OMEPRAZOLE [Suspect]
     Indication: REFLUX OESOPHAGITIS
     Route: 048
  2. MELOXICAM [Concomitant]
     Dosage: STARTED OVER 1 YEAR PRIOR TO EVENT
  3. PROCHLORPERAZINE MALEATE [Concomitant]
     Dosage: STARTED OVER 1 YEAR PRIOR TO EVENT
  4. DOCUSATE SODIUM [Concomitant]
     Dosage: STARTED OVER 1 YEAR PRIOR TO EVENT

REACTIONS (1)
  - DERMATOMYOSITIS [None]
